FAERS Safety Report 15346989 (Version 1)
Quarter: 2018Q3

REPORT INFORMATION
  Report Type: Spontaneous
  Country: FR (occurrence: FR)
  Receive Date: 20180904
  Receipt Date: 20180904
  Transmission Date: 20181010
  Serious: Yes (Other)
  Sender: FDA-Public Use
  Company Number: PHHY2018FR086019

PATIENT
  Age: 47 Year
  Sex: Female
  Weight: 62 kg

DRUGS (1)
  1. GILENYA [Suspect]
     Active Substance: FINGOLIMOD HYDROCHLORIDE
     Indication: MULTIPLE SCLEROSIS
     Dosage: 1 DF, QD
     Route: 048
     Dates: start: 2011, end: 20180715

REACTIONS (1)
  - Follicle centre lymphoma, follicular grade I, II, III stage I [Not Recovered/Not Resolved]

NARRATIVE: CASE EVENT DATE: 201801
